FAERS Safety Report 8972184 (Version 1)
Quarter: 2012Q4

REPORT INFORMATION
  Report Type: 
  Country: DE (occurrence: DE)
  Receive Date: 20121218
  Receipt Date: 20121218
  Transmission Date: 20130627
  Serious: Yes (Hospitalization)
  Sender: FDA-Public Use
  Company Number: DE-ABBOTT-12P-062-1022678-00

PATIENT
  Age: 56 Year
  Sex: Female

DRUGS (6)
  1. AKINETON [Suspect]
     Indication: PRODUCT USED FOR UNKNOWN INDICATION
     Route: 048
     Dates: start: 20120925
  2. AKINETON [Suspect]
     Route: 048
     Dates: start: 20120926
  3. AKINETON [Suspect]
     Route: 048
     Dates: start: 20120927
  4. ZUCLOPENTHIXOL [Suspect]
     Indication: PRODUCT USED FOR UNKNOWN INDICATION
     Route: 048
     Dates: start: 20120823, end: 20120920
  5. OPIPRAMOL [Concomitant]
     Indication: PRODUCT USED FOR UNKNOWN INDICATION
     Dosage: 50 mg/day
     Route: 048
     Dates: end: 20120926
  6. OBSIDAN [Concomitant]
     Indication: PRODUCT USED FOR UNKNOWN INDICATION
     Dosage: 25 mg/day
     Route: 048
     Dates: end: 20120927

REACTIONS (4)
  - Delirium [Recovering/Resolving]
  - Disorientation [None]
  - Distractibility [None]
  - Restlessness [None]
